FAERS Safety Report 14307642 (Version 10)
Quarter: 2018Q2

REPORT INFORMATION
  Report Type: Spontaneous
  Country: FR (occurrence: FR)
  Receive Date: 20171220
  Receipt Date: 20180629
  Transmission Date: 20180711
  Serious: Yes (Hospitalization, Other)
  Sender: FDA-Public Use
  Company Number: PHHY2017FR185849

PATIENT
  Age: 75 Year
  Sex: Male
  Weight: 88 kg

DRUGS (20)
  1. NEFOPAM HYDROCHLORIDE [Suspect]
     Active Substance: NEFOPAM HYDROCHLORIDE
     Indication: PAIN
     Dosage: 3 UG, QD
     Route: 048
  2. FUROSEMIDE. [Suspect]
     Active Substance: FUROSEMIDE
     Indication: HYPERTENSION
     Dosage: 30 MG, BID
     Route: 048
     Dates: start: 20170825, end: 20171003
  3. MIRTAZAPINE. [Suspect]
     Active Substance: MIRTAZAPINE
     Indication: DEPRESSIVE SYMPTOM
     Dosage: 15 MG, QD
     Route: 048
     Dates: start: 20170910
  4. DIFFU K [Suspect]
     Active Substance: POTASSIUM CHLORIDE
     Indication: HYPOKALAEMIA
     Dosage: 6 DF, QD (3 DF DAILY (2-1-0) 2X/DAY (BID) )
     Route: 048
     Dates: start: 20170824, end: 20171003
  5. SEROPLEX [Suspect]
     Active Substance: ESCITALOPRAM OXALATE
     Indication: DEPRESSIVE SYMPTOM
     Dosage: 1 DF, QD
     Route: 048
     Dates: start: 20170101, end: 20170910
  6. COLCHICINE OPOCALCIUM [Suspect]
     Active Substance: COLCHICINE
     Indication: GOUT
     Dosage: 1 MG, QD
     Route: 048
     Dates: start: 20170914, end: 20170921
  7. PANTOPRAZOLE [Suspect]
     Active Substance: PANTOPRAZOLE
     Indication: GASTROOESOPHAGEAL REFLUX DISEASE
     Dosage: 20 MG, QD
     Route: 048
     Dates: start: 20150101, end: 20171025
  8. FUROSEMIDE. [Suspect]
     Active Substance: FUROSEMIDE
     Dosage: 1200 MG, BID
     Route: 065
  9. TAVANIC [Suspect]
     Active Substance: LEVOFLOXACIN
     Indication: LUNG DISORDER
     Dosage: 250 MG, BID
     Route: 048
     Dates: start: 20170905, end: 20170919
  10. METFORMIN [Suspect]
     Active Substance: METFORMIN HYDROCHLORIDE
     Indication: DIABETES MELLITUS
     Dosage: 500 MG, BID
     Route: 048
     Dates: start: 20170824, end: 20171025
  11. ALPRAZOLAM. [Suspect]
     Active Substance: ALPRAZOLAM
     Indication: DEPRESSIVE SYMPTOM
     Dosage: 0.25 MG, TID
     Route: 048
     Dates: start: 20170928
  12. TERBUTALINE SULFATE. [Suspect]
     Active Substance: TERBUTALINE SULFATE
     Indication: LUNG DISORDER
     Dosage: 1 DF, QD
     Route: 055
     Dates: start: 20170914, end: 20170921
  13. IRBESARTAN. [Suspect]
     Active Substance: IRBESARTAN
     Indication: HYPERTENSION
     Dosage: 300 MG, QD
     Route: 048
     Dates: start: 20150101, end: 20171006
  14. AMLODIPINE BESYLATE. [Suspect]
     Active Substance: AMLODIPINE BESYLATE
     Indication: HYPERTENSION
     Dosage: 10 MG, QD
     Route: 048
     Dates: start: 20170825, end: 20170927
  15. BISOPROLOL FUMARATE. [Suspect]
     Active Substance: BISOPROLOL FUMARATE
     Indication: HYPERTENSION
     Dosage: 1.25 MG, QD
     Route: 048
     Dates: start: 20171006
  16. NEFOPAM HYDROCHLORIDE [Suspect]
     Active Substance: NEFOPAM HYDROCHLORIDE
     Dosage: 9 DF, UNK
     Route: 048
  17. XARELTO [Suspect]
     Active Substance: RIVAROXABAN
     Indication: ATRIAL FIBRILLATION
     Dosage: 20 MG, QD
     Route: 048
     Dates: start: 20170824, end: 20171025
  18. VALIUM [Suspect]
     Active Substance: DIAZEPAM
     Indication: DEPRESSIVE SYMPTOM
     Dosage: 3 DF, QD
     Route: 048
     Dates: start: 20170101, end: 20170927
  19. DIAZEPAM. [Suspect]
     Active Substance: DIAZEPAM
     Indication: DEPRESSIVE SYMPTOM
     Dosage: 10 MG, TID
     Route: 048
     Dates: start: 20170101, end: 20170927
  20. DAFALGAN [Suspect]
     Active Substance: ACETAMINOPHEN
     Indication: PAIN
     Dosage: 1000 MG, TID
     Route: 048
     Dates: start: 20171009

REACTIONS (1)
  - Agranulocytosis [Recovered/Resolved]

NARRATIVE: CASE EVENT DATE: 20171024
